FAERS Safety Report 18341252 (Version 1)
Quarter: 2020Q4

REPORT INFORMATION
  Report Type: Spontaneous
  Country: FR (occurrence: FR)
  Receive Date: 20201003
  Receipt Date: 20201003
  Transmission Date: 20210113
  Serious: Yes (Other)
  Sender: FDA-Public Use
  Company Number: FR-TEVA-2020-FR-1833970

PATIENT
  Age: 92 Year
  Sex: Female
  Weight: 87 kg

DRUGS (9)
  1. LEVOFLOXACINE [Suspect]
     Active Substance: LEVOFLOXACIN
     Indication: URINARY TRACT INFECTION
     Dosage: 250MG
     Route: 048
     Dates: start: 20200828, end: 20200830
  2. DIFFU K, GELULE [Concomitant]
     Active Substance: POTASSIUM CHLORIDE
  3. LEVOTHYROX [Concomitant]
     Active Substance: LEVOTHYROXINE
  4. BISOCE [Concomitant]
     Active Substance: BISOPROLOL
  5. FUROSEMIDE. [Concomitant]
     Active Substance: FUROSEMIDE
  6. AMOXICILLINE [Suspect]
     Active Substance: AMOXICILLIN
     Indication: ERYSIPELAS
     Dosage: 2 GRAM
     Route: 048
     Dates: start: 20200823, end: 20200828
  7. BROMAZEPAM [Concomitant]
     Active Substance: BROMAZEPAM
  8. AMOXICILLINE [Suspect]
     Active Substance: AMOXICILLIN
     Indication: ERYSIPELAS
     Dosage: 2 GRAM
     Route: 048
     Dates: start: 20200830, end: 20200901
  9. MIANSERINE (CHLORHYDRATE DE) [Concomitant]
     Active Substance: MIANSERIN HYDROCHLORIDE

REACTIONS (2)
  - Erythema [Recovered/Resolved]
  - Purpura [Recovered/Resolved]

NARRATIVE: CASE EVENT DATE: 20200830
